APPROVED DRUG PRODUCT: SPIRIVA RESPIMAT
Active Ingredient: TIOTROPIUM BROMIDE
Strength: EQ 0.0025MG BASE/INH
Dosage Form/Route: SPRAY, METERED;INHALATION
Application: N021936 | Product #001
Applicant: BOEHRINGER INGELHEIM PHARMACEUTICALS INC
Approved: Sep 24, 2014 | RLD: Yes | RS: Yes | Type: RX

PATENTS:
Patent 7396341 | Expires: Oct 10, 2026
Patent 7837235 | Expires: Mar 13, 2028
Patent 9027967 | Expires: Mar 31, 2027
Patent 8733341 | Expires: Oct 16, 2030
Patent 7837235*PED | Expires: Sep 13, 2028
Patent 7396341*PED | Expires: Apr 10, 2027
Patent 9027967*PED | Expires: Sep 30, 2027
Patent 8733341*PED | Expires: Apr 16, 2031